FAERS Safety Report 9844543 (Version 1)
Quarter: 2014Q1

REPORT INFORMATION
  Report Type: Spontaneous
  Country: FR (occurrence: None)
  Receive Date: 20140122
  Receipt Date: 20140122
  Transmission Date: 20141002
  Serious: Yes (Other)
  Sender: FDA-Public Use
  Company Number: KAD201401-000047

PATIENT
  Age: 60 Year
  Sex: Female

DRUGS (7)
  1. RIBAVIRIN (RIBAVIRIN) [Suspect]
     Indication: HEPATITIS C
     Route: 048
     Dates: start: 20131007, end: 20131013
  2. BMS 914143 [Suspect]
     Indication: HEPATITIS C
     Route: 058
     Dates: start: 20131007, end: 20131007
  3. PEGINTERFERON ALFA-2A (PEGINTERFERON ALFA-2A) [Suspect]
     Indication: HEPATITIS C
     Route: 058
     Dates: start: 20131007, end: 20131013
  4. TELAPREVIR (TELAPREVIR) [Suspect]
     Indication: HEPATITIS C
     Route: 048
     Dates: start: 20131007, end: 20131013
  5. PARACETAMOL (ACETAMINOPHEN) [Concomitant]
  6. LEVOTHYROXINE SODIUM (LEVOTHYROXINE SODIUM) [Concomitant]
  7. DEXERYL (GLYCEROL, WHITE SOFT PARAFFIN, LIQUID PARAFFIN) [Concomitant]

REACTIONS (2)
  - Jaundice [None]
  - Blood bilirubin increased [None]
